FAERS Safety Report 18889689 (Version 30)
Quarter: 2022Q3

REPORT INFORMATION
  Report Type: Spontaneous
  Country: GB (occurrence: GB)
  Receive Date: 20210213
  Receipt Date: 20220910
  Transmission Date: 20221026
  Serious: Yes (Life-Threatening, Hospitalization, Disabling, Other)
  Sender: FDA-Public Use
  Company Number: GB-DRREDDYS-GER/UKI/11/0021051

PATIENT
  Age: 31 Year
  Sex: Female
  Weight: 63.5 kg

DRUGS (66)
  1. OMEPRAZOLE [Suspect]
     Active Substance: OMEPRAZOLE
     Indication: Dyspepsia
     Route: 048
     Dates: start: 20110525
  2. OMEPRAZOLE [Suspect]
     Active Substance: OMEPRAZOLE
     Route: 048
  3. TRAMADOL [Interacting]
     Active Substance: TRAMADOL
     Indication: Neck pain
     Dosage: DISCONTINUED AFTER 4 OR 5 DAYS
     Route: 048
     Dates: start: 20081201, end: 20101210
  4. TRAMADOL [Interacting]
     Active Substance: TRAMADOL
     Indication: Analgesic therapy
     Dosage: 50-100 MG
     Route: 048
     Dates: start: 20080722
  5. TRAMADOL [Interacting]
     Active Substance: TRAMADOL
     Indication: Back pain
     Route: 044
     Dates: start: 1995, end: 1996
  6. TRAMADOL [Interacting]
     Active Substance: TRAMADOL
     Indication: Depression
     Route: 065
  7. TRAMADOL [Interacting]
     Active Substance: TRAMADOL
     Route: 048
  8. TRAMADOL [Interacting]
     Active Substance: TRAMADOL
     Route: 048
  9. TRAMADOL [Interacting]
     Active Substance: TRAMADOL
     Dosage: DISCONTINUED AFTER 4 OR 5 DAYS
     Route: 048
     Dates: start: 20081201, end: 20101210
  10. CLONAZEPAM [Interacting]
     Active Substance: CLONAZEPAM
     Indication: Sedation
     Route: 048
     Dates: start: 20110224, end: 20110410
  11. CLONAZEPAM [Interacting]
     Active Substance: CLONAZEPAM
     Route: 048
     Dates: end: 20110410
  12. LORAZEPAM [Interacting]
     Active Substance: LORAZEPAM
     Indication: Sedation
     Route: 048
     Dates: start: 20110523, end: 20110627
  13. LORAZEPAM [Interacting]
     Active Substance: LORAZEPAM
     Dosage: DRUG WITHDRAWN
     Route: 048
     Dates: start: 20110224, end: 20110410
  14. LORAZEPAM [Interacting]
     Active Substance: LORAZEPAM
     Route: 048
     Dates: start: 20110725
  15. LORAZEPAM [Interacting]
     Active Substance: LORAZEPAM
     Route: 048
     Dates: start: 20110202, end: 20110410
  16. LORAZEPAM [Interacting]
     Active Substance: LORAZEPAM
     Route: 048
     Dates: start: 20110523, end: 20110627
  17. LORAZEPAM [Interacting]
     Active Substance: LORAZEPAM
     Dosage: DRUG WITHDRAWN
     Route: 048
     Dates: start: 20110224, end: 20110410
  18. LORAZEPAM [Interacting]
     Active Substance: LORAZEPAM
     Route: 048
     Dates: start: 20110523, end: 20110627
  19. MIRTAZAPINE [Interacting]
     Active Substance: MIRTAZAPINE
     Indication: Depression
     Dosage: 30 MG IN THE DAY AND 15 MG AT NIGHT
     Route: 048
     Dates: start: 20100923, end: 20101108
  20. MIRTAZAPINE [Interacting]
     Active Substance: MIRTAZAPINE
     Dosage: 30 MG IN THE DAY AND 15 MG AT NIGHT
     Route: 048
     Dates: start: 20101007, end: 20101012
  21. MIRTAZAPINE [Interacting]
     Active Substance: MIRTAZAPINE
     Route: 065
     Dates: start: 20110224, end: 20110506
  22. MIRTAZAPINE [Interacting]
     Active Substance: MIRTAZAPINE
     Dosage: UNK (30MG IN THE DAY AND 15MG AT NIGHT)
     Route: 065
  23. PROCYCLIDINE [Interacting]
     Active Substance: PROCYCLIDINE
     Indication: Extrapyramidal disorder
     Route: 048
     Dates: start: 20110503, end: 20110510
  24. PROCYCLIDINE [Interacting]
     Active Substance: PROCYCLIDINE
     Indication: Oculogyric crisis
     Route: 048
     Dates: start: 1995, end: 1996
  25. PROCYCLIDINE [Interacting]
     Active Substance: PROCYCLIDINE
     Route: 048
     Dates: start: 20110324, end: 20110506
  26. PROCYCLIDINE [Interacting]
     Active Substance: PROCYCLIDINE
     Dosage: 20 MG, QD, IN 1ST TRIMESTE
     Route: 065
     Dates: start: 20110415
  27. PROCYCLIDINE [Interacting]
     Active Substance: PROCYCLIDINE
     Route: 048
     Dates: start: 1995, end: 1995
  28. PROCYCLIDINE [Interacting]
     Active Substance: PROCYCLIDINE
     Dosage: 5 MG, TID
     Route: 048
     Dates: start: 20110503, end: 20110510
  29. PAROXETINE HYDROCHLORIDE [Interacting]
     Active Substance: PAROXETINE HYDROCHLORIDE
     Indication: Post-traumatic stress disorder
     Route: 048
     Dates: start: 19990801, end: 201105
  30. PAROXETINE HYDROCHLORIDE [Interacting]
     Active Substance: PAROXETINE HYDROCHLORIDE
     Indication: Depression
     Dosage: 40 MG,QD
     Route: 048
     Dates: start: 201105, end: 20110706
  31. PAROXETINE HYDROCHLORIDE [Interacting]
     Active Substance: PAROXETINE HYDROCHLORIDE
     Route: 048
     Dates: start: 201012
  32. PAROXETINE HYDROCHLORIDE [Interacting]
     Active Substance: PAROXETINE HYDROCHLORIDE
     Route: 048
     Dates: start: 1999
  33. PAROXETINE HYDROCHLORIDE [Interacting]
     Active Substance: PAROXETINE HYDROCHLORIDE
     Dosage: 20 MG TID
     Route: 048
     Dates: start: 1997
  34. PAROXETINE HYDROCHLORIDE [Interacting]
     Active Substance: PAROXETINE HYDROCHLORIDE
     Route: 048
  35. PAROXETINE HYDROCHLORIDE [Interacting]
     Active Substance: PAROXETINE HYDROCHLORIDE
     Dosage: 20 MG TID
     Route: 048
     Dates: start: 1997
  36. PAROXETINE HYDROCHLORIDE [Interacting]
     Active Substance: PAROXETINE HYDROCHLORIDE
     Dosage: 20 MG, TID
     Route: 048
     Dates: start: 19990801, end: 201105
  37. DOMPERIDONE [Suspect]
     Active Substance: DOMPERIDONE
     Indication: Product used for unknown indication
     Route: 048
  38. DOMPERIDONE [Suspect]
     Active Substance: DOMPERIDONE
     Route: 048
     Dates: start: 20100923, end: 20101108
  39. DOMPERIDONE [Suspect]
     Active Substance: DOMPERIDONE
     Route: 048
  40. DOMPERIDONE [Suspect]
     Active Substance: DOMPERIDONE
     Route: 048
  41. DIAZEPAM [Suspect]
     Active Substance: DIAZEPAM
     Indication: Muscle spasms
     Route: 048
     Dates: start: 20110725
  42. DIAZEPAM [Suspect]
     Active Substance: DIAZEPAM
     Indication: Depression
     Dosage: 5 MG QDS AND NOW ON 2-2-4 MG
     Route: 048
     Dates: start: 20110725
  43. DIAZEPAM [Suspect]
     Active Substance: DIAZEPAM
     Indication: Serotonin syndrome
     Route: 048
  44. DIAZEPAM [Suspect]
     Active Substance: DIAZEPAM
     Dosage: 5 MG QDS AND NOW ON 2-2-4 MG
     Route: 048
     Dates: start: 20110725
  45. DIAZEPAM [Suspect]
     Active Substance: DIAZEPAM
     Dosage: 5 MG QDS AND NOW ON 2-2-4 MG
     Route: 048
     Dates: start: 20110725
  46. AMITRIPTYLINE [Suspect]
     Active Substance: AMITRIPTYLINE
     Indication: Muscle spasms
     Route: 065
     Dates: start: 20110810
  47. AMITRIPTYLINE [Suspect]
     Active Substance: AMITRIPTYLINE
     Indication: Neuralgia
     Route: 065
  48. AMITRIPTYLINE [Suspect]
     Active Substance: AMITRIPTYLINE
     Indication: Serotonin syndrome
     Route: 065
  49. AMITRIPTYLINE [Suspect]
     Active Substance: AMITRIPTYLINE
     Indication: Drug withdrawal syndrome
  50. CODEINE [Suspect]
     Active Substance: CODEINE
     Indication: Analgesic therapy
     Dosage: 15-30 MG
     Route: 048
     Dates: start: 20110615, end: 20110723
  51. CODEINE [Suspect]
     Active Substance: CODEINE
     Indication: Serotonin syndrome
     Dosage: 15-30 MG QDS
     Route: 048
     Dates: start: 2008, end: 2008
  52. CODEINE [Suspect]
     Active Substance: CODEINE
     Dosage: 15-30 MG QDS
     Route: 048
     Dates: start: 2002, end: 2002
  53. CODEINE [Suspect]
     Active Substance: CODEINE
     Route: 048
     Dates: start: 20110224, end: 20110410
  54. PAROXETINE [Suspect]
     Active Substance: PAROXETINE
     Indication: Depression
     Route: 048
     Dates: start: 19990801, end: 20110706
  55. PAROXETINE [Suspect]
     Active Substance: PAROXETINE
     Indication: Post-traumatic stress disorder
     Route: 048
     Dates: start: 1996
  56. PAROXETINE [Suspect]
     Active Substance: PAROXETINE
     Route: 048
     Dates: start: 1999
  57. PAROXETINE [Suspect]
     Active Substance: PAROXETINE
     Dosage: INTERRUPTED
     Route: 048
     Dates: start: 1997, end: 201105
  58. PAROXETINE [Suspect]
     Active Substance: PAROXETINE
     Dosage: 20 MG THREE TIMES A DAY (PHARMACEUTICAL DOSAGE FORM: TABLET)
     Route: 048
     Dates: start: 19990801, end: 201105
  59. PAROXETINE [Suspect]
     Active Substance: PAROXETINE
     Route: 048
     Dates: start: 201012
  60. PAROXETINE [Suspect]
     Active Substance: PAROXETINE
     Route: 048
     Dates: start: 19990801, end: 20110706
  61. PAROXETINE [Suspect]
     Active Substance: PAROXETINE
     Route: 048
     Dates: start: 201105, end: 20110706
  62. PAROXETINE [Suspect]
     Active Substance: PAROXETINE
     Dosage: INTERRUPTED
     Route: 048
     Dates: start: 1997, end: 201105
  63. PAROXETINE [Suspect]
     Active Substance: PAROXETINE
     Route: 048
     Dates: start: 19990801, end: 20110706
  64. PAROXETINE [Suspect]
     Active Substance: PAROXETINE
     Route: 048
     Dates: start: 201012
  65. PHOSPHORUS [Suspect]
     Active Substance: PHOSPHORUS
     Indication: Product used for unknown indication
     Route: 065
  66. SEROQUEL [Suspect]
     Active Substance: QUETIAPINE FUMARATE
     Indication: Psychotic disorder
     Route: 048
     Dates: start: 20110224, end: 20110506

REACTIONS (104)
  - Paralysis [Unknown]
  - Drooling [Unknown]
  - Neuroleptic malignant syndrome [Unknown]
  - Incontinence [Not Recovered/Not Resolved]
  - Disorientation [Not Recovered/Not Resolved]
  - Tachycardia [Unknown]
  - Menstrual disorder [Unknown]
  - Mood swings [Unknown]
  - Mania [Unknown]
  - Muscle spasms [Not Recovered/Not Resolved]
  - Restless legs syndrome [Not Recovered/Not Resolved]
  - Tremor [Not Recovered/Not Resolved]
  - Serotonin syndrome [Not Recovered/Not Resolved]
  - Cyanosis [Unknown]
  - Dissociation [Not Recovered/Not Resolved]
  - Gastric pH decreased [Unknown]
  - Heart rate increased [Unknown]
  - Sensory loss [Unknown]
  - Hypoaesthesia [Not Recovered/Not Resolved]
  - Eye pain [Unknown]
  - Psychotic disorder [Recovered/Resolved]
  - Pupillary disorder [Unknown]
  - Sleep disorder [Unknown]
  - Aphasia [Not Recovered/Not Resolved]
  - Parosmia [Unknown]
  - Balance disorder [Unknown]
  - Urinary retention [Unknown]
  - Schizophrenia [Unknown]
  - Cogwheel rigidity [Unknown]
  - Facial paralysis [Unknown]
  - Musculoskeletal stiffness [Not Recovered/Not Resolved]
  - Tinnitus [Unknown]
  - Restlessness [Unknown]
  - Restlessness [Not Recovered/Not Resolved]
  - Drug withdrawal syndrome [Not Recovered/Not Resolved]
  - Feeling of body temperature change [Unknown]
  - Muscle rigidity [Unknown]
  - Emotional disorder [Unknown]
  - Contusion [Not Recovered/Not Resolved]
  - Speech disorder [Unknown]
  - Skin discolouration [Not Recovered/Not Resolved]
  - Feeling jittery [Unknown]
  - Nightmare [Unknown]
  - Dyskinesia [Unknown]
  - Dystonia [Unknown]
  - H1N1 influenza [Unknown]
  - Musculoskeletal stiffness [Unknown]
  - Cyanosis [Unknown]
  - Gait disturbance [Unknown]
  - Seizure [Unknown]
  - Hypoaesthesia oral [Unknown]
  - Dyspnoea [Unknown]
  - Drug withdrawal syndrome [Unknown]
  - Toxicity to various agents [Unknown]
  - Premature labour [Unknown]
  - Mydriasis [Unknown]
  - Decreased appetite [Unknown]
  - Suicidal ideation [Not Recovered/Not Resolved]
  - Limb injury [Unknown]
  - Derealisation [Not Recovered/Not Resolved]
  - Disturbance in attention [Unknown]
  - Muscle disorder [Unknown]
  - Feeling of despair [Unknown]
  - Delirium [Unknown]
  - Paralysis [Unknown]
  - Contusion [Not Recovered/Not Resolved]
  - Contusion [Not Recovered/Not Resolved]
  - Electric shock sensation [Unknown]
  - Lip swelling [Unknown]
  - Somnolence [Not Recovered/Not Resolved]
  - Swelling face [Unknown]
  - Visual impairment [Unknown]
  - Confusional state [Not Recovered/Not Resolved]
  - Swollen tongue [Unknown]
  - Vision blurred [Unknown]
  - Diarrhoea [Unknown]
  - Cyanosis [Unknown]
  - Illness [Unknown]
  - Depersonalisation/derealisation disorder [Not Recovered/Not Resolved]
  - Hyperhidrosis [Unknown]
  - Depression [Unknown]
  - Pyrexia [Unknown]
  - Blood sodium decreased [Unknown]
  - Pruritus [Unknown]
  - Asthenia [Unknown]
  - Dizziness [Unknown]
  - Drug interaction [Unknown]
  - Anxiety [Unknown]
  - Agitation [Unknown]
  - Headache [Unknown]
  - Hallucinations, mixed [Unknown]
  - Fatigue [Not Recovered/Not Resolved]
  - Musculoskeletal pain [Unknown]
  - Vomiting [Unknown]
  - Arthralgia [Unknown]
  - Incontinence [Not Recovered/Not Resolved]
  - Paraesthesia [Unknown]
  - Pallor [Unknown]
  - Gastric pH decreased [Unknown]
  - Maternal exposure during pregnancy [Unknown]
  - Drug ineffective [Unknown]
  - Therapeutic product ineffective [Unknown]
  - Off label use [Unknown]
  - Exposure during pregnancy [Unknown]

NARRATIVE: CASE EVENT DATE: 20030101
